FAERS Safety Report 23848104 (Version 2)
Quarter: 2024Q2

REPORT INFORMATION
  Report Type: Spontaneous
  Country: US (occurrence: US)
  Receive Date: 20240513
  Receipt Date: 20240517
  Transmission Date: 20240715
  Serious: No
  Sender: FDA-Public Use
  Company Number: US-PFIZER INC-PV202400059516

PATIENT
  Age: 7 Year
  Sex: Female
  Weight: 3.43 kg

DRUGS (1)
  1. NGENLA [Suspect]
     Active Substance: SOMATROGON-GHLA
     Indication: Hypopituitarism
     Dosage: WEEKLY DOSE 16.5 MG/WEEK
     Route: 058
     Dates: start: 20240512

REACTIONS (4)
  - Bone density abnormal [Unknown]
  - Blood calcium increased [Unknown]
  - Blood thyroid stimulating hormone increased [Unknown]
  - Injection site pain [Recovered/Resolved]
